FAERS Safety Report 7790586-1 (Version None)
Quarter: 2011Q3

REPORT INFORMATION
  Report Type: 
  Country: None (occurrence: None)
  Receive Date: 20110930
  Receipt Date: 20110131
  Transmission Date: 20111222
  Serious: No
  Sender: FDA-Public Use
  Company Number: US-BAYER-2011-010974

PATIENT
  Age: 79 Year
  Sex: Female

DRUGS (1)
  1. CIPRO [Suspect]
     Indication: CYSTITIS
     Dosage: 500 MG, BID
     Route: 048
     Dates: start: 20101111, end: 20101120

REACTIONS (2)
  - ASTHENIA [None]
  - MUSCLE SPASMS [None]
